FAERS Safety Report 10610564 (Version 2)
Quarter: 2014Q4

REPORT INFORMATION
  Report Type: Report from Study
  Country: NL (occurrence: NL)
  Receive Date: 20141126
  Receipt Date: 20141126
  Transmission Date: 20150529
  Serious: Yes (Death, Hospitalization, Other)
  Sender: FDA-Public Use
  Company Number: NL-ABBVIE-14P-114-1299868-00

PATIENT
  Age: 70 Year
  Sex: Male

DRUGS (2)
  1. ANDROCUR [Concomitant]
     Active Substance: CYPROTERONE ACETATE
     Indication: PROSTATE CANCER
  2. LUCRIN DEPOT [Suspect]
     Active Substance: LEUPROLIDE ACETATE
     Indication: PROSTATE CANCER
     Route: 058
     Dates: start: 20131031

REACTIONS (3)
  - Prostate cancer metastatic [Fatal]
  - Myocardial infarction [Unknown]
  - Coronary arterial stent insertion [Unknown]

NARRATIVE: CASE EVENT DATE: 201410
